FAERS Safety Report 12612902 (Version 4)
Quarter: 2017Q3

REPORT INFORMATION
  Report Type: Report from Study
  Country: US (occurrence: US)
  Receive Date: 20160802
  Receipt Date: 20170810
  Transmission Date: 20171127
  Serious: Yes (Other)
  Sender: FDA-Public Use
  Company Number: US-AMGEN-USASL2016098124

PATIENT
  Age: 54 Year
  Sex: Female

DRUGS (2)
  1. ENBREL [Suspect]
     Active Substance: ETANERCEPT
     Indication: ANKYLOSING SPONDYLITIS
     Dosage: UNK UNK, QWK
     Route: 065
     Dates: start: 2013
  2. ENBREL [Suspect]
     Active Substance: ETANERCEPT
     Dosage: 50 MG, 2 TIMES/WK
     Route: 065

REACTIONS (15)
  - Drug effect delayed [Unknown]
  - Laboratory test abnormal [Unknown]
  - Thinking abnormal [Not Recovered/Not Resolved]
  - Ovarian cancer [Not Recovered/Not Resolved]
  - Seizure [Unknown]
  - Fall [Unknown]
  - Wrong technique in product usage process [Unknown]
  - Ankylosing spondylitis [Not Recovered/Not Resolved]
  - Localised infection [Unknown]
  - Vision blurred [Not Recovered/Not Resolved]
  - Osteomyelitis [Unknown]
  - Concussion [Not Recovered/Not Resolved]
  - Dysphonia [Unknown]
  - Unevaluable event [Unknown]
  - Road traffic accident [Unknown]

NARRATIVE: CASE EVENT DATE: 20160511
